FAERS Safety Report 18905116 (Version 1)
Quarter: 2021Q1

REPORT INFORMATION
  Report Type: Spontaneous
  Country: NL (occurrence: NL)
  Receive Date: 20210217
  Receipt Date: 20210217
  Transmission Date: 20210420
  Serious: Yes (Hospitalization)
  Sender: FDA-Public Use
  Company Number: NL-BAXTER-2021BAX002695

PATIENT
  Age: 41 Year
  Sex: Female
  Weight: 56.6 kg

DRUGS (2)
  1. MANNITOL 15%, OPLOSSING VOOR INFUSIE 150G/L [Suspect]
     Active Substance: MANNITOL
     Indication: ANGLE CLOSURE GLAUCOMA
     Dosage: 500 ML
     Route: 065
     Dates: start: 20210123, end: 20210123
  2. ACETAZOLAMIDE. [Suspect]
     Active Substance: ACETAZOLAMIDE
     Indication: ANGLE CLOSURE GLAUCOMA
     Dosage: 500MG/5ML
     Route: 065
     Dates: start: 20210123, end: 20210123

REACTIONS (8)
  - Metabolic acidosis [Recovered/Resolved]
  - Urinary retention [Recovered/Resolved]
  - Bradycardia [Recovered/Resolved]
  - Chest pain [Recovered/Resolved]
  - Hyponatraemia [Recovered/Resolved]
  - Muscle spasms [Recovered/Resolved]
  - Paraesthesia [Recovered/Resolved]
  - Hypotension [Recovered/Resolved]

NARRATIVE: CASE EVENT DATE: 20210123
